FAERS Safety Report 5672334-4 (Version None)
Quarter: 2008Q1

REPORT INFORMATION
  Report Type: 
  Country: None (occurrence: None)
  Receive Date: 20080317
  Receipt Date: 20080303
  Transmission Date: 20080703
  Serious: Yes (Death)
  Sender: FDA-Public Use
  Company Number: 1-15850324

PATIENT
  Sex: Male
  Weight: 81.6475 kg

DRUGS (1)
  1. FENTANYL [Suspect]
     Indication: PAIN
     Dosage: 100MCG/HR EVERY 72 HR, TRANSDERMAL
     Route: 062
     Dates: start: 20061001, end: 20080101

REACTIONS (4)
  - ASTHENIA [None]
  - FALL [None]
  - GAIT DISTURBANCE [None]
  - SUDDEN DEATH [None]
